FAERS Safety Report 6973403-9 (Version None)
Quarter: 2010Q3

REPORT INFORMATION
  Report Type: 
  Country: None (occurrence: None)
  Receive Date: 20100909
  Receipt Date: 20100830
  Transmission Date: 20110219
  Serious: Yes (Hospitalization)
  Sender: FDA-Public Use
  Company Number: FR-CELGENEUS-056-C5013-09121521

PATIENT
  Sex: Male
  Weight: 70 kg

DRUGS (26)
  1. LENALIDOMIDE [Suspect]
     Indication: MULTIPLE MYELOMA
     Route: 048
     Dates: start: 20091207, end: 20091217
  2. LENALIDOMIDE [Suspect]
     Route: 048
     Dates: start: 20090902
  3. DEXAMETHASONE [Suspect]
     Indication: MULTIPLE MYELOMA
     Route: 065
     Dates: start: 20091207, end: 20091217
  4. DEXAMETHASONE [Suspect]
     Route: 065
     Dates: start: 20090902
  5. KEPPRA [Concomitant]
     Indication: EPILEPSY
     Route: 048
     Dates: start: 20070101, end: 20091230
  6. TEMERIT [Concomitant]
     Route: 048
     Dates: start: 20091126, end: 20091230
  7. TEMERIT [Concomitant]
     Route: 048
     Dates: start: 19940101, end: 20091125
  8. PRETERAX [Concomitant]
     Route: 048
     Dates: start: 19940101, end: 20091130
  9. HEMIGOXINE [Concomitant]
     Route: 048
     Dates: start: 20010101
  10. HEMIGOXINE [Concomitant]
  11. DURAGESIC-100 [Concomitant]
     Indication: BONE PAIN
     Dosage: 50 MCG/H
     Route: 062
     Dates: start: 20091027, end: 20091230
  12. MORPHINE [Concomitant]
     Indication: BONE PAIN
     Route: 048
     Dates: start: 20091027, end: 20091230
  13. NEORECORMON [Concomitant]
     Route: 065
     Dates: start: 20090901, end: 20091230
  14. FLAGYL [Concomitant]
     Indication: COLITIS
     Route: 048
     Dates: start: 20091207, end: 20091218
  15. FLAGYL [Concomitant]
     Indication: PNEUMONIA
     Route: 048
     Dates: start: 20091118, end: 20091128
  16. ROCEPHIN [Concomitant]
     Indication: PROSTATITIS
     Route: 048
     Dates: start: 20091202, end: 20091223
  17. ROCEPHIN [Concomitant]
     Indication: PNEUMONIA
     Route: 048
     Dates: start: 20091118, end: 20091128
  18. GENTAMICINE [Concomitant]
     Indication: PNEUMONIA
     Route: 065
     Dates: start: 20091119, end: 20091121
  19. HYDROCORTISONE [Concomitant]
     Route: 048
     Dates: start: 20091123, end: 20091128
  20. HYDROCORTISONE [Concomitant]
     Route: 048
     Dates: start: 20091122, end: 20091122
  21. HYDROCORTISONE [Concomitant]
     Route: 048
     Dates: start: 20091120, end: 20091121
  22. SOLU-MEDROL [Concomitant]
     Indication: BONE PAIN
     Route: 065
     Dates: start: 20091109, end: 20091116
  23. ALLOPURINOL [Concomitant]
     Indication: PROPHYLAXIS
     Route: 048
     Dates: start: 20010101, end: 20091230
  24. PRAVASTATIN [Concomitant]
     Route: 048
     Dates: start: 20000101
  25. VOLUVEN [Concomitant]
     Indication: PROPHYLAXIS
     Route: 051
     Dates: start: 20091118, end: 20091120
  26. TARDYFERON [Concomitant]
     Route: 048
     Dates: start: 20091118, end: 20091230

REACTIONS (2)
  - GENERALISED OEDEMA [None]
  - HYPOALBUMINAEMIA [None]
